FAERS Safety Report 14642279 (Version 2)
Quarter: 2018Q2

REPORT INFORMATION
  Report Type: Spontaneous
  Country: CO (occurrence: CO)
  Receive Date: 20180315
  Receipt Date: 20180430
  Transmission Date: 20180711
  Serious: Yes (Other)
  Sender: FDA-Public Use
  Company Number: CO-JNJFOC-20180314677

PATIENT
  Sex: Male

DRUGS (1)
  1. RISPERIDONE. [Suspect]
     Active Substance: RISPERIDONE
     Indication: SCHIZOPHRENIA
     Dosage: TAKING SINCE MORE THAN 2 YEARS
     Route: 048

REACTIONS (8)
  - Rectal haemorrhage [Unknown]
  - Disorientation [Unknown]
  - Headache [Unknown]
  - Hallucination, auditory [Unknown]
  - Paraesthesia [Unknown]
  - Suspected counterfeit product [Unknown]
  - Agitation [Unknown]
  - Back pain [Unknown]

NARRATIVE: CASE EVENT DATE: 201803
